FAERS Safety Report 5642586-5 (Version None)
Quarter: 2008Q1

REPORT INFORMATION
  Report Type: 
  Country: None (occurrence: None)
  Receive Date: 20080227
  Receipt Date: 20080227
  Transmission Date: 20080703
  Serious: Yes (Hospitalization)
  Sender: FDA-Public Use
  Company Number: None

PATIENT
  Sex: Male
  Weight: 77.1115 kg

DRUGS (2)
  1. NPH ILETIN II [Suspect]
     Indication: DIABETES MELLITUS
     Dosage: 25 UNITS IN AM; 12 UNITS IN PM  (THERAPY DATES: PRIOR TO ADMISSION)
  2. HUMULIN R [Suspect]
     Indication: DIABETES MELLITUS
     Dosage: (THERAPY DATES: PRIOR TO ADMISSION)

REACTIONS (1)
  - HYPOGLYCAEMIA [None]
